FAERS Safety Report 7656160-2 (Version None)
Quarter: 2011Q3

REPORT INFORMATION
  Report Type: 
  Country: None (occurrence: None)
  Receive Date: 20110804
  Receipt Date: 20110801
  Transmission Date: 20111222
  Serious: Yes (Hospitalization)
  Sender: FDA-Public Use
  Company Number: US-PFIZER INC-2011175236

PATIENT
  Sex: Female
  Weight: 61.2 kg

DRUGS (1)
  1. PREMARIN [Suspect]
     Indication: OESTROGEN REPLACEMENT THERAPY
     Dosage: 0.9 MG, 1X/DAY
     Route: 048
     Dates: start: 20070701, end: 20110727

REACTIONS (7)
  - FATIGUE [None]
  - WEIGHT DECREASED [None]
  - MALAISE [None]
  - HOT FLUSH [None]
  - ACTIVITIES OF DAILY LIVING IMPAIRED [None]
  - LETHARGY [None]
  - VOMITING [None]
